FAERS Safety Report 7585162-X (Version None)
Quarter: 2011Q3

REPORT INFORMATION
  Report Type: 
  Country: None (occurrence: None)
  Receive Date: 20110701
  Receipt Date: 20110624
  Transmission Date: 20111222
  Serious: Yes (Hospitalization)
  Sender: FDA-Public Use
  Company Number: US-BIOGENIDEC-2010BI044058

PATIENT
  Age: 55 Year
  Sex: Male

DRUGS (1)
  1. AVONEX [Suspect]
     Indication: MULTIPLE SCLEROSIS
     Route: 030
     Dates: start: 20060706

REACTIONS (4)
  - MUSCULAR WEAKNESS [None]
  - LIGAMENT SPRAIN [None]
  - MULTIPLE SCLEROSIS [None]
  - GAIT DISTURBANCE [None]
